FAERS Safety Report 8234969-4 (Version None)
Quarter: 2012Q1

REPORT INFORMATION
  Report Type: 
  Country: None (occurrence: None)
  Receive Date: 20120326
  Receipt Date: 20120315
  Transmission Date: 20120608
  Serious: Yes (Death, Hospitalization)
  Sender: FDA-Public Use
  Company Number: US-ACTELION-A-US2011-45853

PATIENT

DRUGS (1)
  1. TRACLEER [Suspect]
     Indication: PULMONARY ARTERIAL HYPERTENSION
     Dosage: UNK
     Route: 048
     Dates: start: 20110211, end: 20120115

REACTIONS (9)
  - PULMONARY FIBROSIS [None]
  - RESPIRATORY FAILURE [None]
  - CARDIAC FAILURE CONGESTIVE [None]
  - OEDEMA [None]
  - CHEST PAIN [None]
  - FATIGUE [None]
  - COUGH [None]
  - PNEUMONIA [None]
  - DYSPNOEA [None]
